FAERS Safety Report 7406240-1 (Version None)
Quarter: 2011Q2

REPORT INFORMATION
  Report Type: 
  Country: None (occurrence: None)
  Receive Date: 20110411
  Receipt Date: 20110401
  Transmission Date: 20111010
  Serious: Yes (Hospitalization, Other)
  Sender: FDA-Public Use
  Company Number: US-ASTRAZENECA-2011SE05193

PATIENT
  Age: 40 Year
  Sex: Female
  Weight: 56.7 kg

DRUGS (5)
  1. SEROQUEL XR [Suspect]
     Route: 048
  2. RITALIN [Concomitant]
  3. KLONOPIN [Concomitant]
  4. SEROQUEL XR [Suspect]
     Route: 048
     Dates: start: 20101101, end: 20110101
  5. SEROQUEL XR [Suspect]
     Indication: BIPOLAR I DISORDER
     Route: 048
     Dates: start: 20100101, end: 20101101

REACTIONS (8)
  - ADVERSE EVENT [None]
  - DRUG DOSE OMISSION [None]
  - WRONG TECHNIQUE IN DRUG USAGE PROCESS [None]
  - INSOMNIA [None]
  - CERVIX CARCINOMA [None]
  - CONVULSION [None]
  - PARTIAL SEIZURES [None]
  - ABNORMAL BEHAVIOUR [None]
